FAERS Safety Report 25658771 (Version 1)
Quarter: 2025Q3

REPORT INFORMATION
  Report Type: Other
  Country: CA (occurrence: CA)
  Receive Date: 20250808
  Receipt Date: 20250808
  Transmission Date: 20251021
  Serious: Yes (Death, Other)
  Sender: APOTEX
  Company Number: CA-PGRTD-E2B_07855361

PATIENT
  Age: 62 Year
  Sex: Female

DRUGS (1)
  1. AMBRISENTAN [Suspect]
     Active Substance: AMBRISENTAN
     Indication: Pulmonary arterial hypertension
     Dosage: 5 MILLIGRAM, QD
     Route: 048

REACTIONS (1)
  - Death [Fatal]
